FAERS Safety Report 8234285-0 (Version None)
Quarter: 2012Q1

REPORT INFORMATION
  Report Type: 
  Country: None (occurrence: None)
  Receive Date: 20120321
  Receipt Date: 20120307
  Transmission Date: 20120608
  Serious: Yes (Hospitalization, Other)
  Sender: FDA-Public Use
  Company Number: DSA_47264_2011

PATIENT
  Sex: Female

DRUGS (32)
  1. ELIDEL [Suspect]
     Indication: ECZEMA
     Dosage: (DF TOPICAL)
     Route: 061
     Dates: start: 20030301
  2. ZYRTEC [Concomitant]
  3. AZITHROMYCIN [Concomitant]
  4. ASPIRIN [Concomitant]
  5. CORTISONE ACETATE [Concomitant]
  6. AMLODIPINE [Concomitant]
  7. PRENATAL VITAMINS /01549301/ [Concomitant]
  8. IBUPROFEN (ADVIL) [Concomitant]
  9. IBUPROFEN [Concomitant]
  10. NEULASTA [Concomitant]
  11. DOXYCYCLINE [Concomitant]
  12. SULFAMETHOXAZOLE [Concomitant]
  13. ATIVAN [Concomitant]
  14. ALDARA [Concomitant]
  15. DIFLUCAN [Concomitant]
  16. HYDROXYZINB [Concomitant]
  17. ZANTAC [Concomitant]
  18. CORDRAN [Concomitant]
  19. RANITIDINE [Concomitant]
  20. LOPROX [Concomitant]
  21. TRIAMCINOLONE [Concomitant]
  22. SINGULAIR [Concomitant]
  23. METHYLPREDNISOLONE [Concomitant]
  24. TYLENOL (CAPLET) [Concomitant]
  25. SENOKOT /00142205/ [Concomitant]
  26. CEPHALEXIN [Concomitant]
  27. BESYLATE [Concomitant]
  28. MUPIROCIN [Concomitant]
  29. NIZORAL [Concomitant]
  30. PERCOCET [Concomitant]
  31. ATARAX [Concomitant]
  32. HYDROCODONE [Concomitant]

REACTIONS (55)
  - DYSPAREUNIA [None]
  - FOOD ALLERGY [None]
  - GASTROOESOPHAGEAL REFLUX DISEASE [None]
  - HERNIA [None]
  - VARICOSE VEIN [None]
  - EAR PAIN [None]
  - NASAL CONGESTION [None]
  - FATIGUE [None]
  - ALOPECIA [None]
  - HODGKIN'S DISEASE [None]
  - KELOID SCAR [None]
  - PYELOCALIECTASIS [None]
  - SKIN PAPILLOMA [None]
  - ECCHYMOSIS [None]
  - HAEMATOCHEZIA [None]
  - MYALGIA [None]
  - URTICARIA [None]
  - ALLERGY TO ANIMAL [None]
  - PAIN IN EXTREMITY [None]
  - HAEMORRHOIDS [None]
  - HEPATOMEGALY [None]
  - PNEUMOTHORAX [None]
  - REFLUX LARYNGITIS [None]
  - MATERNAL EXPOSURE DURING PREGNANCY [None]
  - RHINITIS ALLERGIC [None]
  - ECZEMA [None]
  - VENOUS THROMBOSIS [None]
  - DIZZINESS [None]
  - CONDITION AGGRAVATED [None]
  - RASH [None]
  - ATELECTASIS [None]
  - ASTHENIA [None]
  - NIGHT SWEATS [None]
  - PREGNANCY [None]
  - CYST [None]
  - GINGIVAL RECESSION [None]
  - OROPHARYNGEAL DISCOMFORT [None]
  - HEADACHE [None]
  - PALPITATIONS [None]
  - VIRAL UPPER RESPIRATORY TRACT INFECTION [None]
  - EAR INFECTION [None]
  - MEDIASTINAL CYST [None]
  - DYSPHONIA [None]
  - DERMAL CYST [None]
  - CAESAREAN SECTION [None]
  - LARYNGOCELE [None]
  - BLADDER DILATATION [None]
  - RASH MACULAR [None]
  - RASH PAPULAR [None]
  - SKIN LESION [None]
  - VAGINAL HAEMORRHAGE [None]
  - HEAD INJURY [None]
  - HAND FRACTURE [None]
  - DYSPEPSIA [None]
  - ONYCHOMYCOSIS [None]
